FAERS Safety Report 4490237-8 (Version None)
Quarter: 2004Q4

REPORT INFORMATION
  Report Type: 
  Country: None (occurrence: None)
  Receive Date: 20041027
  Receipt Date: 20041020
  Transmission Date: 20050328
  Serious: Yes (Hospitalization)
  Sender: FDA-Public Use
  Company Number: 2004-09-0173

PATIENT
  Age: 72 Year
  Sex: Male
  Weight: 128 kg

DRUGS (10)
  1. TEMODAL [Suspect]
     Indication: BRAIN NEOPLASM
     Dosage: 200MG/M^2 QD* ORAL
     Route: 048
     Dates: start: 20040823, end: 20040827
  2. TEMODAL [Suspect]
     Indication: BRAIN NEOPLASM
     Dosage: 200MG/M^2 QD* ORAL
     Route: 048
     Dates: start: 20040920, end: 20040924
  3. TEMODAL [Suspect]
     Indication: BRAIN NEOPLASM
     Dosage: 200MG/M^2 QD* ORAL
     Route: 048
     Dates: start: 20040823
  4. TEMODAL [Suspect]
     Indication: BRAIN NEOPLASM
     Dosage: 200MG/M^2 QD* ORAL
     Route: 048
     Dates: start: 20041018
  5. NEURONTIN [Concomitant]
  6. BRICANYL [Concomitant]
  7. VITAMIN B COMPLEX CAP [Concomitant]
  8. SOLUPRED [Concomitant]
  9. SOLUPRED INJECTABLE [Concomitant]
  10. MUCOMYST [Concomitant]

REACTIONS (10)
  - AGGRESSION [None]
  - CIRCADIAN RHYTHM SLEEP DISORDER [None]
  - CONFUSIONAL STATE [None]
  - HYPOCAPNIA [None]
  - HYPOXIA [None]
  - NERVOUS SYSTEM DISORDER [None]
  - NERVOUSNESS [None]
  - PULMONARY EMBOLISM [None]
  - SOMNOLENCE [None]
  - VENOUS THROMBOSIS LIMB [None]
